FAERS Safety Report 5815820-6 (Version None)
Quarter: 2008Q3

REPORT INFORMATION
  Report Type: 
  Country: None (occurrence: None)
  Receive Date: 20080714
  Receipt Date: 20080325
  Transmission Date: 20090109
  Serious: Yes (Other)
  Sender: FDA-Public Use
  Company Number: 2008VX000765

PATIENT
  Age: 76 Year
  Sex: Male
  Weight: 74 kg

DRUGS (7)
  1. ZELAPAR [Suspect]
     Indication: PARKINSON'S DISEASE
     Dosage: 1.25 MG;QD;PO
     Route: 048
     Dates: start: 20071001
  2. SINEMET [Concomitant]
  3. EXELON [Concomitant]
  4. PRILOSEC [Concomitant]
  5. CLONAZEPAM [Concomitant]
  6. COLACE [Concomitant]
  7. MULTI-VITAMINS [Concomitant]

REACTIONS (1)
  - HYPERTENSIVE CRISIS [None]
